FAERS Safety Report 16046368 (Version 2)
Quarter: 2019Q2

REPORT INFORMATION
  Report Type: Spontaneous
  Country: US (occurrence: US)
  Receive Date: 20190307
  Receipt Date: 20190510
  Transmission Date: 20190711
  Serious: Yes (Hospitalization)
  Sender: FDA-Public Use
  Company Number: US-ASTRAZENECA-2019SE34322

PATIENT
  Sex: Male
  Weight: 59 kg

DRUGS (1)
  1. SYMBICORT [Suspect]
     Active Substance: BUDESONIDE\FORMOTEROL FUMARATE DIHYDRATE
     Indication: BRONCHIECTASIS
     Dosage: 160/4.5 MCG 2 PUFFS TWICE DAILY
     Route: 055

REACTIONS (9)
  - Device issue [Unknown]
  - Dyspnoea [Unknown]
  - Intentional device misuse [Unknown]
  - Loss of consciousness [Unknown]
  - Off label use of device [Unknown]
  - Product use in unapproved indication [Unknown]
  - Bronchial secretion retention [Unknown]
  - Oropharyngeal candidiasis [Unknown]
  - Incorrect dose administered [Unknown]
